FAERS Safety Report 21935937 (Version 1)
Quarter: 2023Q1

REPORT INFORMATION
  Report Type: Report from Study
  Country: US (occurrence: None)
  Receive Date: 20230201
  Receipt Date: 20230201
  Transmission Date: 20230418
  Serious: Yes (Other)
  Sender: FDA-Public Use
  Company Number: US-ROCHE-3259173

PATIENT
  Age: 86 Year
  Sex: Female
  Weight: 73.92 kg

DRUGS (11)
  1. RANIBIZUMAB [Suspect]
     Active Substance: RANIBIZUMAB
     Indication: Neovascular age-related macular degeneration
     Dosage: DOSE OF STUDY DRUG FIRST ADMINISTERED 100 MG/ML, DOSE OF STUDY DRUG PRIOR TO EVENT 100MG/ML, START D
     Route: 050
     Dates: start: 20210224
  2. RANIBIZUMAB [Suspect]
     Active Substance: RANIBIZUMAB
  3. RANIBIZUMAB [Suspect]
     Active Substance: RANIBIZUMAB
  4. RANIBIZUMAB [Suspect]
     Active Substance: RANIBIZUMAB
  5. RANIBIZUMAB [Suspect]
     Active Substance: RANIBIZUMAB
  6. FOSAMAX [Concomitant]
     Active Substance: ALENDRONATE SODIUM
     Indication: Osteoporosis
     Route: 048
     Dates: start: 2005
  7. LIPITOR [Concomitant]
     Active Substance: ATORVASTATIN CALCIUM
     Indication: Blood cholesterol increased
     Route: 048
     Dates: start: 1995
  8. NIFEDIPINE [Concomitant]
     Active Substance: NIFEDIPINE
     Indication: Hypertension
     Route: 048
     Dates: start: 1995
  9. MINERALS\VITAMINS [Concomitant]
     Active Substance: MINERALS\VITAMINS
     Route: 048
     Dates: start: 20181210
  10. PLAVIX [Concomitant]
     Active Substance: CLOPIDOGREL BISULFATE
     Dates: start: 20190417
  11. RANIBIZUMAB [Concomitant]
     Active Substance: RANIBIZUMAB
     Dosage: DOSE 10 MG/ML?ON 06/JAN/2023, RECEIVED 10 MG/ML MOST RECENT DOSE OF STUDY DRUG PRIOR TO SAE
     Route: 050

REACTIONS (2)
  - Device issue [Unknown]
  - No adverse event [Unknown]

NARRATIVE: CASE EVENT DATE: 20230106
